FAERS Safety Report 21613705 (Version 1)
Quarter: 2022Q4

REPORT INFORMATION
  Report Type: Report from Study
  Country: CA (occurrence: CA)
  Receive Date: 20221118
  Receipt Date: 20221118
  Transmission Date: 20230113
  Serious: Yes (Hospitalization, Other)
  Sender: FDA-Public Use
  Company Number: CA-SA-SAC20220830001094

PATIENT
  Age: 46 Year
  Sex: Male
  Weight: 120.6 kg

DRUGS (24)
  1. ANTI-THYMOCYTE GLOBULIN (RABBIT) NOS [Suspect]
     Active Substance: LAPINE T-LYMPHOCYTE IMMUNE GLOBULIN
     Indication: Prophylaxis against graft versus host disease
     Dosage: 59 MG
     Route: 042
     Dates: start: 20211124, end: 20211124
  2. ANTI-THYMOCYTE GLOBULIN (RABBIT) NOS [Suspect]
     Active Substance: LAPINE T-LYMPHOCYTE IMMUNE GLOBULIN
     Dosage: 235 MG
     Route: 042
     Dates: start: 20211125, end: 20211125
  3. ANTI-THYMOCYTE GLOBULIN (RABBIT) NOS [Suspect]
     Active Substance: LAPINE T-LYMPHOCYTE IMMUNE GLOBULIN
     Dosage: 235 MG
     Route: 042
     Dates: start: 20211126, end: 20211126
  4. METHOTREXATE [Suspect]
     Active Substance: METHOTREXATE
     Indication: Prophylaxis against graft versus host disease
     Dosage: 15 MG
     Route: 042
     Dates: start: 20211127, end: 20211127
  5. METHOTREXATE [Suspect]
     Active Substance: METHOTREXATE
     Dosage: 10 MG
     Route: 042
     Dates: start: 20211129, end: 20211129
  6. METHOTREXATE [Suspect]
     Active Substance: METHOTREXATE
     Dosage: 10 MG
     Route: 042
     Dates: start: 20211202, end: 20211202
  7. METHOTREXATE [Suspect]
     Active Substance: METHOTREXATE
     Dosage: 10 MG
     Route: 042
     Dates: start: 20211207, end: 20211207
  8. CYCLOSPORINE [Suspect]
     Active Substance: CYCLOSPORINE
     Indication: Prophylaxis against graft versus host disease
     Dosage: 300 MG
     Route: 042
     Dates: start: 20211126, end: 20211129
  9. CYCLOSPORINE [Suspect]
     Active Substance: CYCLOSPORINE
     Dosage: 250 MG
     Route: 042
     Dates: start: 20211129, end: 20211201
  10. CYCLOSPORINE [Suspect]
     Active Substance: CYCLOSPORINE
     Dosage: 125 MG
     Route: 042
     Dates: start: 20211201, end: 20211203
  11. CYCLOSPORINE [Suspect]
     Active Substance: CYCLOSPORINE
     Dosage: 200 MG
     Route: 042
     Dates: start: 20211203, end: 20211206
  12. CYCLOSPORINE [Suspect]
     Active Substance: CYCLOSPORINE
     Dosage: 300 MG
     Route: 042
     Dates: start: 20211206, end: 20211213
  13. CYCLOSPORINE [Suspect]
     Active Substance: CYCLOSPORINE
     Dosage: 250 MG
     Route: 042
     Dates: start: 20211213, end: 20211215
  14. CYCLOSPORINE [Suspect]
     Active Substance: CYCLOSPORINE
     Dosage: 600 MG
     Route: 042
     Dates: start: 20211215, end: 20211219
  15. CYCLOSPORINE [Suspect]
     Active Substance: CYCLOSPORINE
     Dosage: 250 MG
     Route: 042
     Dates: start: 20211219, end: 20211224
  16. CYCLOSPORINE [Suspect]
     Active Substance: CYCLOSPORINE
     Dosage: 200 MG
     Route: 042
     Dates: start: 20211224, end: 20220107
  17. CYCLOSPORINE [Suspect]
     Active Substance: CYCLOSPORINE
     Dosage: 275 MG
     Route: 042
     Dates: start: 20220107, end: 20220114
  18. CYCLOSPORINE [Suspect]
     Active Substance: CYCLOSPORINE
     Dosage: 250 MG
     Route: 042
     Dates: start: 20220114, end: 20220121
  19. CYCLOSPORINE [Suspect]
     Active Substance: CYCLOSPORINE
     Dosage: 150 MG
     Route: 042
     Dates: start: 20220121, end: 20220128
  20. CYCLOSPORINE [Suspect]
     Active Substance: CYCLOSPORINE
     Dosage: 100 MG
     Route: 042
     Dates: start: 20220128, end: 20220204
  21. CYCLOSPORINE [Suspect]
     Active Substance: CYCLOSPORINE
     Dosage: 50 MG
     Route: 042
     Dates: start: 20220204, end: 20220211
  22. AZACITIDINE [Concomitant]
     Active Substance: AZACITIDINE
     Dosage: UNK
  23. PREDNISONE [Concomitant]
     Active Substance: PREDNISONE
     Dosage: 30 MG
  24. NEUPOGEN [Concomitant]
     Active Substance: FILGRASTIM
     Dosage: 480 MCG

REACTIONS (1)
  - Anal abscess [Recovered/Resolved]

NARRATIVE: CASE EVENT DATE: 20220731
